FAERS Safety Report 8589358-X (Version None)
Quarter: 2012Q3

REPORT INFORMATION
  Report Type: 
  Country: None (occurrence: None)
  Receive Date: 20120813
  Receipt Date: 20120517
  Transmission Date: 20120928
  Serious: Yes (Other)
  Sender: FDA-Public Use
  Company Number: RU-BAXTER-2011BH021109

PATIENT
  Sex: Male
  Weight: 83 kg

DRUGS (3)
  1. FEIBA [Suspect]
     Dosage: ADDITIONAL LOT # VNF2J022 AND VNF2J019
     Route: 042
  2. FEIBA [Suspect]
     Indication: FACTOR VIII INHIBITION
     Route: 042
     Dates: start: 20110618
  3. FEIBA [Suspect]

REACTIONS (1)
  - HEPATITIS B SURFACE ANTIBODY POSITIVE [None]
